FAERS Safety Report 26190403 (Version 1)
Quarter: 2025Q4

REPORT INFORMATION
  Report Type: Report from Study
  Country: CA (occurrence: CA)
  Receive Date: 20251223
  Receipt Date: 20251223
  Transmission Date: 20260117
  Serious: Yes (Death)
  Sender: AMGEN
  Company Number: CA-BEH-2025229693

PATIENT
  Age: 86 Year
  Sex: Male

DRUGS (1)
  1. AVACOPAN [Suspect]
     Active Substance: AVACOPAN
     Indication: Product used for unknown indication
     Dosage: 30 MG, BID
     Route: 048
     Dates: start: 20251117

REACTIONS (1)
  - Death [Fatal]

NARRATIVE: CASE EVENT DATE: 20251211
